FAERS Safety Report 7959368-1 (Version None)
Quarter: 2011Q4

REPORT INFORMATION
  Report Type: 
  Country: None (occurrence: None)
  Receive Date: 20111206
  Receipt Date: 20111124
  Transmission Date: 20120403
  Serious: Yes (Hospitalization)
  Sender: FDA-Public Use
  Company Number: JP-SANOFI-AVENTIS-2011SA078760

PATIENT
  Age: 76 Year
  Sex: Male
  Weight: 57 kg

DRUGS (6)
  1. GIMERACIL/OTERACIL POTASSIUM/TEGAFUR [Suspect]
     Route: 048
     Dates: start: 20110708
  2. GIMERACIL/OTERACIL POTASSIUM/TEGAFUR [Suspect]
     Route: 048
     Dates: start: 20111104, end: 20111115
  3. OXALIPLATIN [Suspect]
     Indication: GASTRIC CANCER
     Route: 041
     Dates: start: 20110603, end: 20110603
  4. OXALIPLATIN [Suspect]
     Route: 041
     Dates: start: 20111104, end: 20111104
  5. GIMERACIL/OTERACIL POTASSIUM/TEGAFUR [Suspect]
     Indication: GASTRIC CANCER
     Route: 048
     Dates: start: 20110603, end: 20110617
  6. OXALIPLATIN [Suspect]
     Route: 041
     Dates: start: 20110708

REACTIONS (13)
  - FALL [None]
  - PAIN [None]
  - DECREASED APPETITE [None]
  - CONTUSION [None]
  - BLOOD PRESSURE DIASTOLIC DECREASED [None]
  - RIB FRACTURE [None]
  - HEART RATE INCREASED [None]
  - BLOOD BILIRUBIN INCREASED [None]
  - BLOOD UREA INCREASED [None]
  - WHITE BLOOD CELL COUNT INCREASED [None]
  - FATIGUE [None]
  - ARRHYTHMIA [None]
  - ATRIAL FIBRILLATION [None]
